FAERS Safety Report 11202037 (Version 3)
Quarter: 2015Q3

REPORT INFORMATION
  Report Type: Report from Study
  Country: DE (occurrence: DE)
  Receive Date: 20150619
  Receipt Date: 20150819
  Transmission Date: 20151125
  Serious: Yes (Hospitalization)
  Sender: FDA-Public Use
  Company Number: DE-BIOGENIDEC-2015BI081893

PATIENT
  Age: 51 Year
  Sex: Female

DRUGS (21)
  1. ASA [Concomitant]
     Active Substance: ASPIRIN
  2. NITRO-SPRAY [Concomitant]
     Active Substance: ISOSORBIDE DINITRATE
  3. IBUPROFEN. [Concomitant]
     Active Substance: IBUPROFEN
  4. SALOFALK [Concomitant]
     Active Substance: MESALAMINE
     Indication: CROHN^S DISEASE
  5. SIMVABETA [Concomitant]
     Active Substance: SIMVASTATIN
  6. IRON [Concomitant]
     Active Substance: IRON
  7. PANTOPRAZOLE [Concomitant]
     Active Substance: PANTOPRAZOLE SODIUM
  8. VIGANTOLETTEN [Concomitant]
     Active Substance: CHOLECALCIFEROL
     Indication: VITAMIN D DEFICIENCY
     Dates: start: 2013
  9. BISOPROLOL [Concomitant]
     Active Substance: BISOPROLOL
  10. ATORVASTATIN [Concomitant]
     Active Substance: ATORVASTATIN
  11. RAMIPRIL. [Concomitant]
     Active Substance: RAMIPRIL
  12. BIOTIN [Concomitant]
     Active Substance: BIOTIN
  13. EFIENT [Concomitant]
     Active Substance: PRASUGREL HYDROCHLORIDE
     Dates: end: 20150523
  14. DELIX [Concomitant]
     Active Substance: RAMIPRIL
  15. VITAMIN D3 [Concomitant]
     Active Substance: CHOLECALCIFEROL
  16. PSORCUTAN [Concomitant]
  17. SALOFALK [Concomitant]
     Active Substance: MESALAMINE
  18. PLEGRIDY [Suspect]
     Active Substance: PEGINTERFERON BETA-1A
     Indication: MULTIPLE SCLEROSIS
     Route: 058
     Dates: start: 20141211
  19. PLEGRIDY [Suspect]
     Active Substance: PEGINTERFERON BETA-1A
     Indication: MULTIPLE SCLEROSIS
     Dates: start: 20141124
  20. PLEGRIDY [Suspect]
     Active Substance: PEGINTERFERON BETA-1A
     Indication: MULTIPLE SCLEROSIS
     Route: 058
     Dates: start: 20141127
  21. PANTOPRAZOLE [Concomitant]
     Active Substance: PANTOPRAZOLE SODIUM

REACTIONS (7)
  - Influenza like illness [Unknown]
  - Coronary artery stenosis [Recovered/Resolved]
  - Herpes zoster [Not Recovered/Not Resolved]
  - Atrophic vulvovaginitis [Recovered/Resolved]
  - Acute myocardial infarction [Recovered/Resolved with Sequelae]
  - Urinary tract infection [Recovered/Resolved]
  - Dyspnoea exertional [Unknown]

NARRATIVE: CASE EVENT DATE: 201505
